FAERS Safety Report 5629536-2 (Version None)
Quarter: 2008Q1

REPORT INFORMATION
  Report Type: 
  Country: None (occurrence: None)
  Receive Date: 20080218
  Receipt Date: 20080207
  Transmission Date: 20080703
  Serious: Yes (Hospitalization, Other)
  Sender: FDA-Public Use
  Company Number: US-ROCHE-546037

PATIENT
  Age: 77 Year
  Sex: Female

DRUGS (2)
  1. TAMIFLU [Suspect]
     Route: 065
  2. BRONCHODILATOR [Concomitant]
     Dosage: DRUG REPORTED AS: AT LEAST TWO BRONCHODILATORS.

REACTIONS (3)
  - EMOTIONAL DISTRESS [None]
  - IRRITABILITY [None]
  - RESPIRATORY DISORDER [None]
